FAERS Safety Report 4752468-9 (Version None)
Quarter: 2005Q3

REPORT INFORMATION
  Report Type: 
  Country: None (occurrence: None)
  Receive Date: 20050825
  Receipt Date: 20050819
  Transmission Date: 20060218
  Serious: Yes (Hospitalization)
  Sender: FDA-Public Use
  Company Number: PHRM2005FR02308

PATIENT
  Age: 15 Year
  Sex: Female

DRUGS (3)
  1. NEORAL [Suspect]
     Indication: HEART TRANSPLANT
     Route: 048
     Dates: start: 20050301
  2. CORTICOSTEROID NOS [Suspect]
     Indication: HEART TRANSPLANT
     Dosage: UNK, UNK
     Dates: start: 20050301
  3. VALACYCLOVIR HCL [Suspect]

REACTIONS (6)
  - HEADACHE [None]
  - HYPERTENSION [None]
  - INTRACRANIAL PRESSURE INCREASED [None]
  - PAPILLOEDEMA [None]
  - VISUAL DISTURBANCE [None]
  - VOMITING [None]
